FAERS Safety Report 18238697 (Version 1)
Quarter: 2020Q3

REPORT INFORMATION
  Report Type: Report from Study
  Country: BR (occurrence: BR)
  Receive Date: 20200907
  Receipt Date: 20200907
  Transmission Date: 20201103
  Serious: Yes (Hospitalization)
  Sender: FDA-Public Use
  Company Number: NVSC2019BR002762

PATIENT
  Sex: Male

DRUGS (2)
  1. COSENTYX [Suspect]
     Active Substance: SECUKINUMAB
     Indication: ANKYLOSING SPONDYLITIS
     Dosage: UNK, QMO (EVERY 28 DAYS) (BATCH NUMBER NOT REPORTED)
     Route: 065
     Dates: start: 201806
  2. COSENTYX [Suspect]
     Active Substance: SECUKINUMAB
     Dosage: UNK, QMO (EVERY 28 DAYS) (BATCH NUMBER NOT REPORTED)
     Route: 065
     Dates: start: 20190930

REACTIONS (2)
  - Illness [Unknown]
  - Dysarthria [Unknown]
